FAERS Safety Report 9300928 (Version 1)
Quarter: 2013Q2

REPORT INFORMATION
  Report Type: Spontaneous
  Country: US (occurrence: None)
  Receive Date: 20130520
  Receipt Date: 20130520
  Transmission Date: 20140414
  Serious: Yes (Other)
  Sender: FDA-Public Use
  Company Number: None

PATIENT
  Age: 78 Year
  Sex: Male

DRUGS (1)
  1. RESTASIS [Suspect]
     Indication: DRY EYE
     Dosage: 1 DROP EACH EYE TWICE A DAY
     Dates: start: 20130503, end: 20130517

REACTIONS (3)
  - Ocular hyperaemia [None]
  - Vision blurred [None]
  - Eye irritation [None]
